FAERS Safety Report 20403466 (Version 1)
Quarter: 2022Q1

REPORT INFORMATION
  Report Type: Spontaneous
  Country: US (occurrence: US)
  Receive Date: 20220131
  Receipt Date: 20220131
  Transmission Date: 20220423
  Serious: No
  Sender: FDA-Public Use
  Company Number: US-HETERO-HET2022US00189

PATIENT

DRUGS (5)
  1. RITONAVIR [Suspect]
     Active Substance: RITONAVIR
     Indication: COVID-19
     Dosage: 5 BUBBLE PACKS AND EACH DAY BUBBLE PACK IS MARKED 3 FOR EVENING AND 3 FOR THE DAY
     Route: 065
     Dates: start: 20220117
  2. ACYCLOVIR                          /00587301/ [Concomitant]
     Indication: Neoplasm malignant
     Dosage: UNK
     Route: 065
     Dates: start: 202109
  3. POSACONAZOLE [Concomitant]
     Active Substance: POSACONAZOLE
     Indication: Fungal infection
     Dosage: UNK
     Route: 065
     Dates: start: 202109
  4. PREVYMIS [Concomitant]
     Active Substance: LETERMOVIR
     Indication: Transplant rejection
     Dosage: UNK
     Route: 065
     Dates: start: 2021
  5. DAPSONE [Concomitant]
     Active Substance: DAPSONE
     Indication: Prophylaxis
     Dosage: UNK
     Route: 065
     Dates: start: 2021

REACTIONS (5)
  - Condition aggravated [Not Recovered/Not Resolved]
  - Feeling abnormal [Unknown]
  - Decreased appetite [Not Recovered/Not Resolved]
  - Diarrhoea [Not Recovered/Not Resolved]
  - Dysgeusia [Not Recovered/Not Resolved]

NARRATIVE: CASE EVENT DATE: 20220117
